FAERS Safety Report 4371292-2 (Version None)
Quarter: 2004Q2

REPORT INFORMATION
  Report Type: 
  Country: None (occurrence: None)
  Receive Date: 20040603
  Receipt Date: 20040524
  Transmission Date: 20050107
  Serious: Yes (Death)
  Sender: FDA-Public Use
  Company Number: 2004215047US

PATIENT
  Age: 43 Year
  Sex: Male

DRUGS (4)
  1. XANAX [Suspect]
  2. SOLU-MEDROL [Suspect]
     Dosage: 44 UG, 3 IN 1 WEEK, IV
     Route: 042
  3. REBIF [Suspect]
     Indication: MULTIPLE SCLEROSIS
     Dosage: 44 MG 3 IN 1 WEEK, SUBCUTANEOUS
     Route: 058
     Dates: start: 20040401, end: 20040501
  4. RISPERDAL [Suspect]

REACTIONS (6)
  - BIPOLAR DISORDER [None]
  - COMPLETED SUICIDE [None]
  - CONDITION AGGRAVATED [None]
  - DEPRESSION [None]
  - MULTIPLE SCLEROSIS [None]
  - VISION BLURRED [None]
